FAERS Safety Report 25093202 (Version 2)
Quarter: 2025Q3

REPORT INFORMATION
  Report Type: Report from Study
  Country: US (occurrence: US)
  Receive Date: 20250319
  Receipt Date: 20250802
  Transmission Date: 20251020
  Serious: Yes (Hospitalization)
  Sender: ALEXION PHARMACEUTICALS
  Company Number: US-AstraZeneca-CH-00826131A

PATIENT
  Age: 59 Year
  Sex: Female

DRUGS (1)
  1. OSIMERTINIB [Suspect]
     Active Substance: OSIMERTINIB
     Dosage: 80 MILLIGRAM, QD
     Route: 065

REACTIONS (7)
  - Urinary tract infection [Unknown]
  - Influenza [Unknown]
  - Product dose omission issue [Unknown]
  - Pain in extremity [Unknown]
  - Paraesthesia [Unknown]
  - Sleep disorder [Unknown]
  - Cognitive disorder [Unknown]

NARRATIVE: CASE EVENT DATE: 20240101
